FAERS Safety Report 17043683 (Version 1)
Quarter: 2019Q4

REPORT INFORMATION
  Report Type: Spontaneous
  Country: US (occurrence: US)
  Receive Date: 20191115
  Receipt Date: 20191115
  Transmission Date: 20200122
  Serious: Yes (Other)
  Sender: FDA-Public Use
  Company Number: None

PATIENT
  Age: 59 Year
  Sex: Male
  Weight: 126 kg

DRUGS (1)
  1. TELMISARTAN TABLETS, USP 40 MG [Suspect]
     Active Substance: TELMISARTAN
     Indication: HYPERTENSION
     Dosage: ?          QUANTITY:1 TABLET(S);?
     Route: 048
     Dates: start: 20191113, end: 20191115

REACTIONS (6)
  - Dyspnoea exertional [None]
  - Product substitution issue [None]
  - Blood pressure increased [None]
  - Heart rate increased [None]
  - Ventricular extrasystoles [None]
  - Sensory disturbance [None]

NARRATIVE: CASE EVENT DATE: 20191114
